FAERS Safety Report 5390022-9 (Version None)
Quarter: 2007Q3

REPORT INFORMATION
  Report Type: 
  Country: None (occurrence: None)
  Receive Date: 20070713
  Receipt Date: 20070704
  Transmission Date: 20080115
  Serious: Yes (Hospitalization)
  Sender: FDA-Public Use
  Company Number: VISP-NO-0707S-0297

PATIENT
  Sex: Female

DRUGS (2)
  1. VISIPAQUE [Suspect]
     Indication: DRUG USE FOR UNKNOWN INDICATION
     Dosage: SINGLE DOSE, INTRA-UTERINE
     Route: 015
     Dates: start: 20070524, end: 20070524
  2. VISIPAQUE [Suspect]
     Indication: DRUG USE FOR UNKNOWN INDICATION
     Dosage: SINGLE DOSE, INTRA-UTERINE
     Route: 015
     Dates: start: 20070524, end: 20070524

REACTIONS (2)
  - PAIN [None]
  - SYNCOPE VASOVAGAL [None]
